FAERS Safety Report 5967629-0 (Version None)
Quarter: 2008Q4

REPORT INFORMATION
  Report Type: 
  Country: None (occurrence: None)
  Receive Date: 20081126
  Receipt Date: 20081117
  Transmission Date: 20090506
  Serious: Yes (Hospitalization)
  Sender: FDA-Public Use
  Company Number: PHHY2008BR28906

PATIENT
  Age: 8 Year
  Sex: Male

DRUGS (1)
  1. TOFRANIL [Suspect]
     Dosage: 75 MG, ONCE/SINGLE
     Route: 048
     Dates: start: 20081117

REACTIONS (2)
  - ACCIDENTAL EXPOSURE [None]
  - TACHYCARDIA [None]
